FAERS Safety Report 12351226 (Version 1)
Quarter: 2016Q2

REPORT INFORMATION
  Report Type: Spontaneous
  Country: US (occurrence: None)
  Receive Date: 20160509
  Receipt Date: 20160509
  Transmission Date: 20160815
  Serious: Yes (Hospitalization)
  Sender: FDA-Public Use
  Company Number: None

PATIENT
  Sex: Female

DRUGS (1)
  1. ACETAZOLAMIDE, 250MG [Suspect]
     Active Substance: ACETAZOLAMIDE
     Indication: INTRAOCULAR PRESSURE TEST
     Dates: start: 20160401, end: 20160430

REACTIONS (4)
  - Myalgia [None]
  - Palpitations [None]
  - Blood pressure increased [None]
  - Muscle tightness [None]
